FAERS Safety Report 9314554 (Version 1)
Quarter: 2013Q2

REPORT INFORMATION
  Report Type: Report from Study
  Country: MX (occurrence: MX)
  Receive Date: 20130529
  Receipt Date: 20130529
  Transmission Date: 20140414
  Serious: Yes (Death, Hospitalization)
  Sender: FDA-Public Use
  Company Number: MX-SANOFI-AVENTIS-2013SA052160

PATIENT
  Age: 86 Year
  Sex: Male

DRUGS (2)
  1. PLAVIX [Suspect]
     Indication: THROMBOSIS PROPHYLAXIS
     Route: 048
     Dates: start: 2004, end: 20130206
  2. ANTIHYPERTENSIVES [Concomitant]
     Indication: HYPERTENSION
     Dates: start: 1993, end: 20130206

REACTIONS (2)
  - Peritonitis [Fatal]
  - Abdominal pain upper [Fatal]
